FAERS Safety Report 23631373 (Version 1)
Quarter: 2024Q1

REPORT INFORMATION
  Report Type: Spontaneous
  Country: US (occurrence: US)
  Receive Date: 20240314
  Receipt Date: 20240314
  Transmission Date: 20240410
  Serious: Yes (Other)
  Sender: FDA-Public Use
  Company Number: US-BRISTOL-MYERS SQUIBB COMPANY-2024-036306

PATIENT
  Age: 72 Year
  Sex: Male

DRUGS (1)
  1. REVLIMID [Suspect]
     Active Substance: LENALIDOMIDE
     Indication: Plasma cell myeloma
     Dosage: TAKE 1 CAPSULE BY MOUTH ONCE DAILY FOR 21 DAYS, OFF FOR 7 DAYS
     Route: 048
     Dates: start: 20240301

REACTIONS (5)
  - Cataract [Unknown]
  - Back disorder [Unknown]
  - Diarrhoea [Unknown]
  - Weight decreased [Unknown]
  - Appetite disorder [Unknown]

NARRATIVE: CASE EVENT DATE: 20240301
